FAERS Safety Report 5031717-6 (Version None)
Quarter: 2006Q2

REPORT INFORMATION
  Report Type: 
  Country: None (occurrence: None)
  Receive Date: 20060621
  Receipt Date: 20060613
  Transmission Date: 20061013
  Serious: Yes (Hospitalization, Other)
  Sender: FDA-Public Use
  Company Number: US-AVENTIS-200615228US

PATIENT
  Sex: Female

DRUGS (25)
  1. LANTUS [Suspect]
     Indication: DIABETES MELLITUS INSULIN-DEPENDENT
     Dates: start: 20010101
  2. LANTUS [Suspect]
     Dates: start: 20010101
  3. LEVOXYL [Concomitant]
  4. PREVACID [Concomitant]
  5. ASPIRIN [Concomitant]
  6. MAGNESIUM [Concomitant]
     Dosage: DOSE: 500 (3TABS)
  7. ASACOL [Concomitant]
     Dosage: DOSE: 400 (2 TAB IN AM 1 TAB IN PM)
  8. OSCAL [Concomitant]
  9. MULTIVITAMIN [Concomitant]
     Dosage: DOSE: UNK
  10. PROZAC [Concomitant]
  11. LORAZEPAM [Concomitant]
  12. IRON [Concomitant]
     Dosage: DOSE: UNK
  13. ZOCOR [Concomitant]
  14. NITROFURANTOIN [Concomitant]
     Dosage: DOSE: UNK
  15. GABAPENTIN [Concomitant]
  16. FLUOXETINE [Concomitant]
  17. AMITRIPTYLINE HCL [Concomitant]
     Dosage: DOSE: UNK
  18. ACTONEL [Concomitant]
     Dosage: DOSE: UNK
  19. ACETAMINOPHEN AND OXYCODONE HCL [Concomitant]
     Dosage: DOSE: 5/325
  20. PROMETHAZINE [Concomitant]
     Dosage: DOSE: 25 MG BID
  21. ACETAMINOPHEN AND HYDROCODONE BITARTRATE [Concomitant]
     Dosage: DOSE: UNK
  22. AMBIEN [Concomitant]
  23. TYLENOL EXTRA-STRENGTH [Concomitant]
     Dosage: DOSE: UNK
  24. BENADRYL [Concomitant]
     Indication: PRURITUS
  25. TYLENOL (CAPLET) [Concomitant]
     Dosage: DOSE: UNK

REACTIONS (11)
  - COLITIS [None]
  - DEHYDRATION [None]
  - HYPERGLYCAEMIA [None]
  - HYPOGLYCAEMIA [None]
  - IMPAIRED GASTRIC EMPTYING [None]
  - KIDNEY INFECTION [None]
  - LEG AMPUTATION [None]
  - MENTAL DISORDER [None]
  - RENAL DISORDER [None]
  - SEPSIS [None]
  - URINARY TRACT INFECTION [None]
